APPROVED DRUG PRODUCT: SORBITRATE
Active Ingredient: ISOSORBIDE DINITRATE
Strength: 5MG
Dosage Form/Route: TABLET, CHEWABLE;ORAL
Application: N016776 | Product #002
Applicant: ASTRAZENECA PHARMACEUTICALS LP
Approved: Apr 1, 1996 | RLD: No | RS: No | Type: DISCN